FAERS Safety Report 8320936-9 (Version None)
Quarter: 2012Q2

REPORT INFORMATION
  Report Type: 
  Country: None (occurrence: None)
  Receive Date: 20120430
  Receipt Date: 20120424
  Transmission Date: 20120825
  Serious: Yes (Hospitalization, Other)
  Sender: FDA-Public Use
  Company Number: PHHY2012AR034018

PATIENT
  Sex: Female

DRUGS (1)
  1. ZOLEDRONOC ACID [Suspect]
     Indication: OSTEOPOROSIS
     Dosage: 5 MG, UNK
     Route: 042
     Dates: start: 20120228

REACTIONS (10)
  - HYPERTENSIVE CRISIS [None]
  - HEADACHE [None]
  - PYREXIA [None]
  - CHEST PAIN [None]
  - BACK PAIN [None]
  - NECK PAIN [None]
  - FEELING ABNORMAL [None]
  - BONE PAIN [None]
  - HYPERTENSION [None]
  - FIBROMYALGIA [None]
